FAERS Safety Report 11743729 (Version 1)
Quarter: 2015Q4

REPORT INFORMATION
  Report Type: Spontaneous
  Country: DK (occurrence: DK)
  Receive Date: 20151116
  Receipt Date: 20151116
  Transmission Date: 20160304
  Serious: Yes (Hospitalization)
  Sender: FDA-Public Use
  Company Number: PHHY2015DK144722

PATIENT
  Age: 87 Year
  Sex: Female

DRUGS (8)
  1. ALPROX [Concomitant]
     Active Substance: ALPRAZOLAM
     Indication: RESTLESSNESS
     Route: 065
  2. ELTROXIN [Concomitant]
     Active Substance: LEVOTHYROXINE
     Indication: HYPOMETABOLISM
     Route: 065
  3. ZOLPIDEM [Concomitant]
     Active Substance: ZOLPIDEM\ZOLPIDEM TARTRATE
     Indication: SLEEP DISORDER
     Route: 065
  4. CITALOPRAM [Suspect]
     Active Substance: CITALOPRAM HYDROBROMIDE
     Indication: DEPRESSION
     Dosage: 20 MG, QD, STRENGTH: 20 MG
     Route: 048
     Dates: end: 20151023
  5. LITHIUM CARBONATE. [Suspect]
     Active Substance: LITHIUM CARBONATE
     Indication: MOOD SWINGS
     Dosage: 600 MG, QD, STRENGTH: 300 MG.
     Route: 048
     Dates: start: 1994, end: 20151023
  6. GLICLAZID ^KRKA^ [Concomitant]
     Indication: TYPE 2 DIABETES MELLITUS
     Route: 065
  7. MIANSERIN [Concomitant]
     Active Substance: MIANSERIN
     Indication: DEPRESSION
     Route: 065
  8. METFORMIN ACTAVIS [Concomitant]
     Active Substance: METFORMIN HYDROCHLORIDE
     Indication: TYPE 2 DIABETES MELLITUS
     Route: 065

REACTIONS (3)
  - Malaise [Unknown]
  - Syncope [Recovered/Resolved]
  - Electrocardiogram QT prolonged [Recovered/Resolved]

NARRATIVE: CASE EVENT DATE: 2015
